FAERS Safety Report 13949158 (Version 1)
Quarter: 2017Q3

REPORT INFORMATION
  Report Type: Spontaneous
  Country: US (occurrence: None)
  Receive Date: 20170908
  Receipt Date: 20170908
  Transmission Date: 20171128
  Serious: Yes (Death, Life-Threatening, Hospitalization, Other)
  Sender: FDA-Public Use
  Company Number: None

PATIENT
  Age: 75 Year
  Sex: Male

DRUGS (1)
  1. FENTANYL. [Suspect]
     Active Substance: FENTANYL
     Indication: PAIN
     Dates: start: 20150414, end: 20150423

REACTIONS (6)
  - Anxiety [None]
  - Crying [None]
  - Incoherent [None]
  - Respiratory arrest [None]
  - Depression [None]
  - Coma [None]

NARRATIVE: CASE EVENT DATE: 20150414
